FAERS Safety Report 7941355-0 (Version None)
Quarter: 2011Q4

REPORT INFORMATION
  Report Type: 
  Country: None (occurrence: None)
  Receive Date: 20111128
  Receipt Date: 20111116
  Transmission Date: 20120403
  Serious: Yes (Hospitalization, Other)
  Sender: FDA-Public Use
  Company Number: US-BAYER-2011-091321

PATIENT
  Age: 28 Year
  Sex: Female
  Weight: 93 kg

DRUGS (11)
  1. DROSPIRENONE AND ETHINYL ESTRADIOL [Suspect]
     Indication: ACNE
     Dosage: UNK
     Dates: start: 20090201, end: 20100601
  2. TIZANIDINE HCL [Concomitant]
     Indication: NECK INJURY
     Dosage: UNK
     Dates: start: 20091101, end: 20101201
  3. YASMIN [Suspect]
     Indication: CONTRACEPTION
     Dosage: UNK
     Dates: start: 20010101
  4. YASMIN [Suspect]
     Dosage: UNK
     Dates: start: 20090201, end: 20100601
  5. ACETAMINOPHEN [Concomitant]
     Indication: ANALGESIC THERAPY
     Dosage: UNK
     Dates: start: 20100524, end: 20100614
  6. SIMVASTATIN [Concomitant]
     Indication: BLOOD CHOLESTEROL INCREASED
     Dosage: UNK UNK, QD
     Dates: start: 20090101
  7. YASMIN [Suspect]
     Indication: ACNE
     Dosage: UNK
     Dates: start: 20080201, end: 20100601
  8. GABAPENTIN [Concomitant]
     Indication: NEURALGIA
     Dosage: UNK UNK, TID
     Dates: start: 20100629, end: 20101201
  9. DICLOFENAC SODIUM [Concomitant]
     Indication: NECK INJURY
     Dosage: 50 MG, BID
     Dates: start: 20090701, end: 20101201
  10. TIZANIDINE HCL [Concomitant]
     Dosage: 4 MG, QD
     Dates: start: 20100629
  11. PERCOCET [Concomitant]
     Dosage: UNK UNK, PRN
     Dates: start: 20100629

REACTIONS (2)
  - CHOLECYSTECTOMY [None]
  - CHOLECYSTITIS CHRONIC [None]
